FAERS Safety Report 6105797-0 (Version None)
Quarter: 2009Q1

REPORT INFORMATION
  Report Type: 
  Country: None (occurrence: None)
  Receive Date: 20090306
  Receipt Date: 20090225
  Transmission Date: 20090719
  Serious: Yes (Hospitalization)
  Sender: FDA-Public Use
  Company Number: TR-ASTRAZENECA-2009AC00661

PATIENT
  Age: 25 Year
  Sex: Female

DRUGS (1)
  1. EMLA [Suspect]
     Indication: ANAESTHESIA
     Route: 061

REACTIONS (2)
  - BURNS SECOND DEGREE [None]
  - SKIN HYPOPIGMENTATION [None]
